FAERS Safety Report 7685286-2 (Version None)
Quarter: 2011Q3

REPORT INFORMATION
  Report Type: 
  Country: None (occurrence: None)
  Receive Date: 20110816
  Receipt Date: 20110805
  Transmission Date: 20111222
  Serious: Yes (Hospitalization)
  Sender: FDA-Public Use
  Company Number: BR-US-EMD SERONO, INC.-7076028

PATIENT
  Sex: Female

DRUGS (4)
  1. REBIF [Suspect]
     Indication: RELAPSING-REMITTING MULTIPLE SCLEROSIS
     Dates: start: 20080830
  2. FLUOXETINE [Concomitant]
  3. BROMAZEPAM [Concomitant]
  4. MIOSAN [Concomitant]

REACTIONS (2)
  - LYMPHADENITIS BACTERIAL [None]
  - COUGH [None]
